FAERS Safety Report 24263653 (Version 1)
Quarter: 2024Q3

REPORT INFORMATION
  Report Type: Spontaneous
  Country: FR (occurrence: FR)
  Receive Date: 20240829
  Receipt Date: 20240829
  Transmission Date: 20241017
  Serious: Yes (Disabling, Other)
  Sender: CHEPLAPHARM
  Company Number: None

PATIENT
  Age: 51 Year
  Sex: Female
  Weight: 80 kg

DRUGS (22)
  1. CAPECITABINE [Suspect]
     Active Substance: CAPECITABINE
     Indication: Invasive ductal breast carcinoma
     Dosage: MORNING AND EVENING FROM D1 TO D14?DAILY DOSE: 3000 MILLIGRAM
     Route: 048
     Dates: start: 20050318
  2. CAPECITABINE [Suspect]
     Active Substance: CAPECITABINE
     Indication: Invasive ductal breast carcinoma
     Dosage: FROM D1 TO D14?DAILY DOSE: 2000 MILLIGRAM
     Route: 048
     Dates: start: 20050630, end: 20051110
  3. CLONAZEPAM [Suspect]
     Active Substance: CLONAZEPAM
     Dates: start: 20051028
  4. PREDNISOLONE SODIUM METASULFOBENZOATE [Suspect]
     Active Substance: PREDNISOLONE SODIUM METAZOATE
     Dates: start: 20051028
  5. ZOMETA [Suspect]
     Active Substance: ZOLEDRONIC ACID
     Indication: Invasive ductal breast carcinoma
     Route: 042
     Dates: start: 20020806, end: 20060110
  6. NAVELBINE [Suspect]
     Active Substance: VINORELBINE TARTRATE
     Indication: Invasive ductal breast carcinoma
     Dosage: INJECTABLE AT A DOSE OF 25 MG/M2 GIVEN ON DAYS ONE AND EIGHT.
     Route: 048
     Dates: start: 20050318
  7. NAVELBINE [Suspect]
     Active Substance: VINORELBINE TARTRATE
     Indication: Invasive ductal breast carcinoma
     Dosage: ORAL DOSE ON DAY ONE AND DAY EIGHT.
     Route: 048
     Dates: start: 20050630, end: 20051110
  8. NAVELBINE [Suspect]
     Active Substance: VINORELBINE TARTRATE
     Indication: Invasive ductal breast carcinoma
     Route: 048
     Dates: start: 20050630, end: 20051110
  9. TAXOL [Suspect]
     Active Substance: PACLITAXEL
     Indication: Invasive ductal breast carcinoma
     Dates: start: 200206
  10. TAXOTERE [Suspect]
     Active Substance: DOCETAXEL
     Indication: Hormone therapy
     Dates: start: 200303, end: 200404
  11. ARIMIDEX [Suspect]
     Active Substance: ANASTROZOLE
     Indication: Hormone therapy
  12. SKENAN [Concomitant]
     Active Substance: MORPHINE SULFATE
     Dates: start: 20051028
  13. PROZAC [Concomitant]
     Active Substance: FLUOXETINE HYDROCHLORIDE
     Dates: start: 20051028
  14. LANSOPRAZOLE [Concomitant]
     Active Substance: LANSOPRAZOLE
     Dates: start: 20051028
  15. HEPTAMINOL HYDROCHLORIDE [Concomitant]
     Active Substance: HEPTAMINOL HYDROCHLORIDE
     Dates: start: 20051028
  16. Praxinor [Concomitant]
     Dates: start: 20051028
  17. ZOLPIDEM [Concomitant]
     Active Substance: ZOLPIDEM TARTRATE
     Dates: start: 20051028
  18. Previscan [Concomitant]
     Dates: start: 20051028
  19. POLYETHYLENE GLYCOL 4000 [Concomitant]
     Active Substance: POLYETHYLENE GLYCOL 4000
     Dates: start: 20051028
  20. DITROPAN [Concomitant]
     Active Substance: OXYBUTYNIN CHLORIDE
     Dates: start: 20051028
  21. XYLOCAINE [Concomitant]
     Active Substance: LIDOCAINE HYDROCHLORIDE\LIDOCAINE HYDROCHLORIDE ANHYDROUS
     Dates: start: 20051028
  22. HEXAQUINE [Concomitant]
     Active Substance: NIAOULI OIL\QUININE BENZOATE\THIAMINE HYDROCHLORIDE
     Dates: start: 20051028

REACTIONS (2)
  - Osteonecrosis [Recovering/Resolving]
  - Mucosal inflammation [Unknown]

NARRATIVE: CASE EVENT DATE: 20051110
